FAERS Safety Report 25844675 (Version 2)
Quarter: 2025Q4

REPORT INFORMATION
  Report Type: Spontaneous
  Country: JP (occurrence: JP)
  Receive Date: 20250925
  Receipt Date: 20251020
  Transmission Date: 20260117
  Serious: Yes (Other)
  Sender: ABBVIE
  Company Number: JP-ABBVIE-6471068

PATIENT
  Age: 30 Year
  Sex: Female

DRUGS (1)
  1. RINVOQ [Suspect]
     Active Substance: UPADACITINIB
     Indication: Dermatitis atopic
     Route: 048

REACTIONS (4)
  - Rhabdomyolysis [Unknown]
  - Myalgia [Unknown]
  - Myopathy [Unknown]
  - Pain [Unknown]

NARRATIVE: CASE EVENT DATE: 20250922
